FAERS Safety Report 6370209-9 (Version None)
Quarter: 2009Q3

REPORT INFORMATION
  Report Type: 
  Country: None (occurrence: None)
  Receive Date: 20090918
  Receipt Date: 20090904
  Transmission Date: 20100115
  Serious: Yes (Death, Life-Threatening, Hospitalization)
  Sender: FDA-Public Use
  Company Number: A-NJ2008-20258

PATIENT
  Age: 72 Year
  Sex: Female

DRUGS (5)
  1. TRACLEER [Suspect]
     Indication: PULMONARY HYPERTENSION
     Dosage: 125 MG, BID, ORAL, 62.5 MG, BID, ORAL
     Route: 048
     Dates: end: 20090824
  2. TRACLEER [Suspect]
     Indication: PULMONARY HYPERTENSION
     Dosage: 125 MG, BID, ORAL, 62.5 MG, BID, ORAL
     Route: 048
     Dates: start: 20060901
  3. VENTAVIS [Suspect]
     Indication: PULMONARY HYPERTENSION
     Dosage: 5 UG, 5-6 X DAY, RESPIRATORY, 2.5 UG, 6 X DAY, RESPIRATORY
     Route: 055
     Dates: start: 20080101, end: 20090824
  4. VENTAVIS [Suspect]
  5. VENTAVIS [Suspect]

REACTIONS (5)
  - BRONCHIOLOALVEOLAR CARCINOMA [None]
  - DISEASE PROGRESSION [None]
  - PNEUMONIA [None]
  - PULMONARY ARTERIAL HYPERTENSION [None]
  - RIGHT VENTRICULAR FAILURE [None]
